FAERS Safety Report 4399460-4 (Version None)
Quarter: 2004Q3

REPORT INFORMATION
  Report Type: 
  Country: None (occurrence: None)
  Receive Date: 20040712
  Receipt Date: 20040629
  Transmission Date: 20050211
  Serious: Yes (Other)
  Sender: FDA-Public Use
  Company Number: 2004020392

PATIENT
  Age: 37 Year
  Sex: Female
  Weight: 66.6788 kg

DRUGS (6)
  1. NARDIL [Suspect]
     Indication: DEPRESSION
  2. PROCARDIA XL [Suspect]
     Indication: HYPERTENSION
     Dosage: 30 MG
     Dates: start: 20040401
  3. LITHIUM CARBONATE (LITHIM CARBONATE) [Concomitant]
  4. LEVOTHYROXINE SODIUM [Concomitant]
  5. CARDURA [Concomitant]
  6. TRIMIPRAMINE MALEATE [Concomitant]

REACTIONS (19)
  - ANXIETY [None]
  - ARTHRALGIA [None]
  - ASTHENIA [None]
  - CRYING [None]
  - CYSTITIS [None]
  - DEPRESSION [None]
  - DRUG INTERACTION [None]
  - EMOTIONAL DISORDER [None]
  - FLUSHING [None]
  - HEADACHE [None]
  - HYPERTENSION [None]
  - INFLUENZA [None]
  - MYALGIA [None]
  - PALPITATIONS [None]
  - PANIC ATTACK [None]
  - PHARYNGEAL MASS [None]
  - PYREXIA [None]
  - RED BLOOD CELL SEDIMENTATION RATE INCREASED [None]
  - URINARY RETENTION [None]
